FAERS Safety Report 21933253 (Version 5)
Quarter: 2023Q2

REPORT INFORMATION
  Report Type: Spontaneous
  Country: FR (occurrence: FR)
  Receive Date: 20230131
  Receipt Date: 20230517
  Transmission Date: 20230722
  Serious: Yes (Hospitalization, Other)
  Sender: FDA-Public Use
  Company Number: FR-ALXN-A202300961

PATIENT
  Age: 47 Year
  Sex: Male
  Weight: 155 kg

DRUGS (8)
  1. SOLIRIS [Suspect]
     Active Substance: ECULIZUMAB
     Indication: Myasthenia gravis
     Dosage: 1200 MG , Q2W
     Route: 065
     Dates: start: 202207, end: 202212
  2. ULTOMIRIS [Suspect]
     Active Substance: RAVULIZUMAB-CWVZ
     Indication: Myasthenia gravis
     Dosage: 3600 MG, EVERY 8 WEEKS
     Route: 065
     Dates: start: 202212
  3. AMLODIPINE BESYLATE [Concomitant]
     Active Substance: AMLODIPINE BESYLATE
     Indication: Hypertension
     Dosage: 10 MG, QD
     Route: 065
  4. CORTISONE [Concomitant]
     Active Substance: CORTISONE
     Indication: Product used for unknown indication
     Dosage: UNK
     Route: 065
     Dates: start: 202212
  5. IVABRADINE                         /05513502/ [Concomitant]
     Indication: Hypertension
     Dosage: 2.5 MG, BID
     Route: 065
  6. MESTINON [Concomitant]
     Active Substance: PYRIDOSTIGMINE BROMIDE
     Dosage: 180 MG, QD
     Route: 065
  7. MESTINON [Concomitant]
     Active Substance: PYRIDOSTIGMINE BROMIDE
     Indication: Muscular weakness
     Dosage: 40 MG, QID
     Route: 065
     Dates: start: 202201
  8. CLARITHROMYCIN [Concomitant]
     Active Substance: CLARITHROMYCIN
     Indication: Prophylaxis
     Dosage: 250 MG, BID
     Route: 065

REACTIONS (7)
  - Myasthenia gravis [Recovered/Resolved]
  - Drug ineffective [Unknown]
  - Muscular weakness [Recovering/Resolving]
  - Mastication disorder [Recovering/Resolving]
  - Speech disorder [Recovering/Resolving]
  - Diplopia [Recovering/Resolving]
  - Dyspnoea [Unknown]

NARRATIVE: CASE EVENT DATE: 20220801
